FAERS Safety Report 5171465-5 (Version None)
Quarter: 2006Q4

REPORT INFORMATION
  Report Type: 
  Country: None (occurrence: None)
  Receive Date: 20061208
  Receipt Date: 20061208
  Transmission Date: 20070319
  Serious: Yes (Hospitalization)
  Sender: FDA-Public Use
  Company Number: None

PATIENT
  Age: 46 Year
  Sex: Female
  Weight: 83.9 kg

DRUGS (23)
  1. CETUXIMAB (CETUXIMAB) [Suspect]
     Indication: CERVIX CARCINOMA
     Dosage: SEE IMAGE
     Route: 042
     Dates: start: 20060815, end: 20060815
  2. CETUXIMAB (CETUXIMAB) [Suspect]
     Indication: CERVIX CARCINOMA
     Dosage: SEE IMAGE
     Route: 042
     Dates: start: 20060824, end: 20060831
  3. CETUXIMAB (CETUXIMAB) [Suspect]
     Indication: CERVIX CARCINOMA
     Dosage: SEE IMAGE
     Route: 042
     Dates: start: 20060907, end: 20060914
  4. CISPLATIN [Suspect]
     Indication: CERVIX CARCINOMA
     Dosage: I.V. WEEKLY
     Route: 042
     Dates: start: 20060907, end: 20060914
  5. RADIATION THERAPY [Suspect]
     Indication: CERVIX CARCINOMA
     Dates: start: 20060907, end: 20060907
  6. DOXYCYCLINE [Concomitant]
  7. ROSIGLITAZONE [Concomitant]
  8. DOCUSATE [Concomitant]
  9. DEXAMETHASONE [Concomitant]
  10. METOPROLOL SUCCINATE [Concomitant]
  11. LISINOPRIL [Concomitant]
  12. NISOLDIPINE [Concomitant]
  13. CLONIDINE [Concomitant]
  14. OXYCODONE HCL [Concomitant]
  15. LORAZEPAM [Concomitant]
  16. APREPITANT [Concomitant]
  17. CLINDAMYCIN [Concomitant]
  18. IBUPROFEN [Concomitant]
  19. OXYCODONE HCL + ACETAMINOPHEN (OXYCODONE HYDROCHLORIDE) [Concomitant]
  20. PROCHLORPERAZINE [Concomitant]
  21. INSULIN SLIDING SCALE (INSULIN) [Concomitant]
  22. METOCLOPRAMIDE [Concomitant]
  23. RANITIDINE [Concomitant]

REACTIONS (11)
  - BILE DUCT STENOSIS [None]
  - BLOOD CULTURE POSITIVE [None]
  - CHOLANGITIS SUPPURATIVE [None]
  - CONSTIPATION [None]
  - DEEP VEIN THROMBOSIS [None]
  - ENTERITIS [None]
  - GASTRIC DILATATION [None]
  - KLEBSIELLA INFECTION [None]
  - SMALL INTESTINAL OBSTRUCTION [None]
  - ULTRASOUND ABDOMEN ABNORMAL [None]
  - WHITE BLOOD CELL COUNT INCREASED [None]
